FAERS Safety Report 7879819-0 (Version None)
Quarter: 2011Q4

REPORT INFORMATION
  Report Type: 
  Country: None (occurrence: None)
  Receive Date: 20111101
  Receipt Date: 20111027
  Transmission Date: 20120403
  Serious: Yes (Disabling)
  Sender: FDA-Public Use
  Company Number: GB-ABBOTT-11P-167-0869388-00

PATIENT
  Age: 32 Year
  Sex: Female

DRUGS (14)
  1. NORVIR [Suspect]
     Indication: HIV INFECTION
     Route: 048
  2. ACETAMINOPHEN [Concomitant]
     Indication: PRODUCT USED FOR UNKNOWN INDICATION
  3. VENLAFAXINE [Concomitant]
     Indication: PRODUCT USED FOR UNKNOWN INDICATION
  4. ATAZANAVIR [Concomitant]
     Indication: PRODUCT USED FOR UNKNOWN INDICATION
  5. TRUVADA [Concomitant]
     Indication: PRODUCT USED FOR UNKNOWN INDICATION
  6. TRIAMCINOLONE ACETONIDE [Interacting]
     Indication: ARTHRITIS
     Dosage: 160MG TOTAL
     Route: 014
  7. VITAMIN B COMPLEX CAP [Concomitant]
     Indication: PRODUCT USED FOR UNKNOWN INDICATION
  8. ASPIRIN [Concomitant]
     Indication: PRODUCT USED FOR UNKNOWN INDICATION
  9. PRAVASTATIN [Concomitant]
     Indication: PRODUCT USED FOR UNKNOWN INDICATION
  10. NAPROXEN SODIUM [Concomitant]
     Indication: PRODUCT USED FOR UNKNOWN INDICATION
  11. THIAMINE HCL [Concomitant]
     Indication: PRODUCT USED FOR UNKNOWN INDICATION
  12. DIHYDROCODEINE BITARTRATE INJ [Concomitant]
     Indication: PRODUCT USED FOR UNKNOWN INDICATION
  13. ANTABUSE [Concomitant]
     Indication: PRODUCT USED FOR UNKNOWN INDICATION
  14. OMEPRAZOLE [Concomitant]
     Indication: PRODUCT USED FOR UNKNOWN INDICATION

REACTIONS (5)
  - CD4 LYMPHOCYTES DECREASED [None]
  - ADRENAL SUPPRESSION [None]
  - DRUG INTERACTION [None]
  - RESPIRATORY TRACT INFECTION [None]
  - OSTEONECROSIS [None]
